FAERS Safety Report 7706445-6 (Version None)
Quarter: 2011Q3

REPORT INFORMATION
  Report Type: 
  Country: None (occurrence: None)
  Receive Date: 20110824
  Receipt Date: 20110805
  Transmission Date: 20111222
  Serious: Yes (Death)
  Sender: FDA-Public Use
  Company Number: FR-JNJFOC-20110610911

PATIENT
  Age: 56 Year
  Sex: Female
  Weight: 65 kg

DRUGS (12)
  1. TMC114 [Suspect]
     Indication: HIV INFECTION
     Route: 048
     Dates: start: 20110429, end: 20110504
  2. ATARAX [Concomitant]
     Indication: PRURIGO
     Route: 048
     Dates: start: 20110328
  3. ISENTRESS [Suspect]
     Route: 065
     Dates: start: 20110513, end: 20110619
  4. TRIMETHOPRIM + SULFAMETHOXAZOLE [Suspect]
     Indication: OPPORTUNISTIC INFECTION PROPHYLAXIS
     Route: 065
     Dates: end: 20110620
  5. NORVIR [Suspect]
     Route: 065
     Dates: start: 20110513, end: 20110619
  6. ISENTRESS [Suspect]
     Indication: HIV INFECTION
     Route: 065
     Dates: start: 20110429, end: 20110504
  7. NORVIR [Suspect]
     Indication: HIV INFECTION
     Route: 065
     Dates: start: 20110429, end: 20110504
  8. ACETAMINOPHEN [Concomitant]
     Indication: PARAESTHESIA
     Route: 048
     Dates: start: 20110527
  9. TMC114 [Suspect]
     Route: 048
     Dates: start: 20110513, end: 20110619
  10. IMOVANE [Concomitant]
     Indication: INSOMNIA
     Route: 048
     Dates: start: 20110527
  11. TRIMETHOPRIM + SULFAMETHOXAZOLE [Suspect]
     Route: 065
     Dates: start: 20110414
  12. DEXERYL [Concomitant]
     Indication: PRURIGO
     Route: 061
     Dates: start: 20110328

REACTIONS (2)
  - MULTI-ORGAN FAILURE [None]
  - DRUG RASH WITH EOSINOPHILIA AND SYSTEMIC SYMPTOMS [None]
